FAERS Safety Report 21800123 (Version 1)
Quarter: 2022Q4

REPORT INFORMATION
  Report Type: Spontaneous
  Country: FR (occurrence: FR)
  Receive Date: 20221230
  Receipt Date: 20221230
  Transmission Date: 20230113
  Serious: Yes (Hospitalization)
  Sender: FDA-Public Use
  Company Number: None

PATIENT
  Age: 20 Year
  Sex: Female

DRUGS (1)
  1. DIAZEPAM [Suspect]
     Active Substance: DIAZEPAM
     Indication: Poisoning deliberate
     Dosage: 6 PLAQUETTES DE 30 COMPRIMES SOIT 180 COMPRIMES
     Route: 050
     Dates: start: 20221218, end: 20221218

REACTIONS (4)
  - Intentional overdose [Recovered/Resolved]
  - Psychomotor skills impaired [Recovered/Resolved]
  - Mydriasis [Recovered/Resolved]
  - Sedation [Recovered/Resolved]

NARRATIVE: CASE EVENT DATE: 20221218
